FAERS Safety Report 5954855-X (Version None)
Quarter: 2008Q4

REPORT INFORMATION
  Report Type: 
  Country: None (occurrence: None)
  Receive Date: 20081113
  Receipt Date: 20081113
  Transmission Date: 20090506
  Serious: Yes (Other)
  Sender: FDA-Public Use
  Company Number: None

PATIENT
  Sex: Male
  Weight: 95.2554 kg

DRUGS (1)
  1. AVODART [Suspect]
     Indication: MICTURITION DISORDER
     Dosage: ONE TABLET DAILY PO
     Route: 048
     Dates: start: 20060901, end: 20080910

REACTIONS (3)
  - BREAST MASS [None]
  - BREAST SWELLING [None]
  - NIPPLE DISORDER [None]
